FAERS Safety Report 5493663-3 (Version None)
Quarter: 2007Q4

REPORT INFORMATION
  Report Type: 
  Country: None (occurrence: None)
  Receive Date: 20071023
  Receipt Date: 20071015
  Transmission Date: 20080405
  Serious: Yes (Death)
  Sender: FDA-Public Use
  Company Number: CA-ELI_LILLY_AND_COMPANY-CA200710004237

PATIENT

DRUGS (2)
  1. FLUOXETINE HYDROCHLORIDE [Suspect]
  2. MERIDIA [Concomitant]

REACTIONS (1)
  - VENTRICULAR FIBRILLATION [None]
